FAERS Safety Report 4771023-8 (Version None)
Quarter: 2005Q3

REPORT INFORMATION
  Report Type: 
  Country: None (occurrence: None)
  Receive Date: 20050915
  Receipt Date: 20050908
  Transmission Date: 20060218
  Serious: Yes (Disabling)
  Sender: FDA-Public Use
  Company Number: PHBS2005AT13305

PATIENT
  Age: 41 Year
  Sex: Female

DRUGS (3)
  1. NOLVADEX [Concomitant]
     Dosage: 10 MG/DAY
  2. ZOMETA [Suspect]
     Indication: METASTASES TO BONE
     Dosage: 4 MG, QMO
     Route: 065
     Dates: start: 20020401, end: 20050501
  3. ZOLADEX [Concomitant]
     Dosage: 3.6 MG, QMO

REACTIONS (3)
  - ASEPTIC NECROSIS BONE [None]
  - OSTEOMYELITIS [None]
  - TOOTH EXTRACTION [None]
